FAERS Safety Report 24210824 (Version 3)
Quarter: 2024Q3

REPORT INFORMATION
  Report Type: Spontaneous
  Country: US (occurrence: US)
  Receive Date: 20240814
  Receipt Date: 20240905
  Transmission Date: 20241017
  Serious: No
  Sender: BIOGEN
  Company Number: US-BIOGEN-2024BI01267891

PATIENT
  Sex: Female

DRUGS (5)
  1. PLEGRIDY [Suspect]
     Active Substance: PEGINTERFERON BETA-1A
     Indication: Multiple sclerosis
     Route: 050
     Dates: start: 20240426
  2. PLEGRIDY [Suspect]
     Active Substance: PEGINTERFERON BETA-1A
     Dosage: NJECT 94 MCG INJECTOR SUBCUTANEOUSLY ON DAY 15
     Route: 050
     Dates: start: 2024
  3. PLEGRIDY [Suspect]
     Active Substance: PEGINTERFERON BETA-1A
     Indication: Multiple sclerosis
     Route: 050
  4. XANAX [Concomitant]
     Active Substance: ALPRAZOLAM
     Route: 050
  5. ADDERALL [Concomitant]
     Active Substance: AMPHETAMINE ASPARTATE\AMPHETAMINE SULFATE\DEXTROAMPHETAMINE SACCHARATE\DEXTROAMPHETAMINE SULFATE
     Route: 050

REACTIONS (7)
  - Product dispensing error [Unknown]
  - Inappropriate schedule of product administration [Unknown]
  - Injection site bruising [Unknown]
  - Injection site erythema [Not Recovered/Not Resolved]
  - Hypersensitivity [Unknown]
  - Injection site rash [Recovered/Resolved]
  - Injection site pain [Unknown]

NARRATIVE: CASE EVENT DATE: 20240101
